FAERS Safety Report 5587114-8 (Version None)
Quarter: 2008Q1

REPORT INFORMATION
  Report Type: 
  Country: None (occurrence: None)
  Receive Date: 20080110
  Receipt Date: 20080108
  Transmission Date: 20080703
  Serious: Yes (Life-Threatening, Hospitalization, Disabling)
  Sender: FDA-Public Use
  Company Number: B0501936A

PATIENT
  Age: 63 Year
  Sex: Female

DRUGS (13)
  1. AMOXICILLIN [Suspect]
     Dosage: 1500MG PER DAY
     Route: 048
     Dates: start: 20071217, end: 20071222
  2. WARFARIN SODIUM [Suspect]
     Route: 048
     Dates: end: 20071223
  3. BUMETANIDE [Concomitant]
     Dosage: 1MG PER DAY
     Route: 048
  4. RAMIPRIL [Concomitant]
     Dosage: 10MG PER DAY
     Route: 048
     Dates: start: 20060101
  5. ASPIRIN [Concomitant]
     Route: 048
     Dates: end: 20071222
  6. PENTASA [Concomitant]
     Dosage: 3G PER DAY
     Route: 048
  7. PREDNISOLONE [Concomitant]
     Route: 048
  8. ALENDRONATE SODIUM [Concomitant]
     Route: 048
  9. CALCICHEW D3 [Concomitant]
     Route: 048
  10. TRIMIPRAMINE MALEATE [Concomitant]
     Dosage: 100MG PER DAY
     Route: 048
     Dates: start: 20070129
  11. ATENOLOL [Concomitant]
     Route: 048
  12. ATENOLOL [Concomitant]
     Route: 042
     Dates: start: 20060101
  13. INFLIXIMAB [Concomitant]

REACTIONS (7)
  - ABDOMINAL DISTENSION [None]
  - ABDOMINAL PAIN LOWER [None]
  - CONTUSION [None]
  - DRUG INTERACTION [None]
  - HAEMATOMA [None]
  - INTERNATIONAL NORMALISED RATIO INCREASED [None]
  - RECTAL HAEMORRHAGE [None]
